FAERS Safety Report 6471989-4 (Version None)
Quarter: 2009Q4

REPORT INFORMATION
  Report Type: 
  Country: None (occurrence: None)
  Receive Date: 20091203
  Receipt Date: 20080403
  Transmission Date: 20100525
  Serious: Yes (Death, Life-Threatening, Other)
  Sender: FDA-Public Use
  Company Number: FI-ELI_LILLY_AND_COMPANY-FI200804000748

PATIENT
  Sex: Male

DRUGS (3)
  1. ZYPREXA [Suspect]
     Indication: PSYCHOTIC DISORDER
     Dosage: 10 MG, 2/D
     Route: 048
     Dates: start: 20070803
  2. SERTRALIN [Concomitant]
     Indication: DEPRESSION
     Dosage: 50 MG, DAILY (1/D)
     Route: 048
     Dates: start: 20080125
  3. DIAPAM [Concomitant]
     Dosage: 5 MG, 3/D
     Route: 048

REACTIONS (4)
  - CARDIAC ARREST [None]
  - COR PULMONALE ACUTE [None]
  - PAIN IN EXTREMITY [None]
  - VENTRICULAR FIBRILLATION [None]
